FAERS Safety Report 5682848-9 (Version None)
Quarter: 2008Q1

REPORT INFORMATION
  Report Type: 
  Country: None (occurrence: None)
  Receive Date: 20080327
  Receipt Date: 20080325
  Transmission Date: 20080703
  Serious: Yes (Hospitalization)
  Sender: FDA-Public Use
  Company Number: B0509082A

PATIENT
  Age: 82 Year
  Sex: Female

DRUGS (14)
  1. VALTREX [Suspect]
     Indication: HERPES ZOSTER
     Dosage: 1000MG THREE TIMES PER DAY
     Route: 048
     Dates: start: 20080214, end: 20080215
  2. NORVASC [Concomitant]
     Dosage: 5MG PER DAY
     Route: 048
  3. BLOPRESS [Concomitant]
     Dosage: 4MG PER DAY
     Route: 048
  4. ANPLAG [Concomitant]
     Dosage: 150MG PER DAY
     Route: 048
  5. SELBEX [Concomitant]
     Route: 048
  6. TRICOR [Concomitant]
     Dosage: 134MG PER DAY
     Route: 048
  7. DEPAS [Concomitant]
     Dosage: 1.5MG PER DAY
     Route: 048
  8. TRIAZOLAM [Concomitant]
     Dosage: .25MG PER DAY
     Route: 048
  9. KINEDAK [Concomitant]
     Route: 048
  10. EUGLUCON [Concomitant]
     Dosage: 2.5MG PER DAY
     Route: 048
  11. BASEN [Concomitant]
     Dosage: .9MG PER DAY
     Route: 048
  12. GOODMIN [Concomitant]
     Route: 048
  13. LOXOPROFEN [Concomitant]
     Route: 048
  14. CARDENALIN [Concomitant]
     Route: 048

REACTIONS (6)
  - ALTERED STATE OF CONSCIOUSNESS [None]
  - DEPRESSED LEVEL OF CONSCIOUSNESS [None]
  - DRUG LEVEL INCREASED [None]
  - OVERDOSE [None]
  - RENAL FAILURE ACUTE [None]
  - SOMNOLENCE [None]
